FAERS Safety Report 7640844-6 (Version None)
Quarter: 2011Q3

REPORT INFORMATION
  Report Type: 
  Country: None (occurrence: None)
  Receive Date: 20110728
  Receipt Date: 20110720
  Transmission Date: 20111222
  Serious: Yes (Other)
  Sender: FDA-Public Use
  Company Number: US-US-EMD SERONO, INC.-7069100

PATIENT
  Sex: Female
  Weight: 77 kg

DRUGS (17)
  1. BACLOFEN [Concomitant]
     Route: 048
  2. PREDNISONE [Concomitant]
     Route: 048
  3. GABAPENTIN [Concomitant]
     Route: 048
  4. OXYCONTIN XR [Concomitant]
     Indication: FIBROMYALGIA
     Route: 048
  5. REBIF [Suspect]
     Indication: MULTIPLE SCLEROSIS
     Route: 058
     Dates: start: 20070911
  6. NEURONTIN [Concomitant]
     Indication: TRIGEMINAL NEURALGIA
  7. PREDNISONE [Concomitant]
  8. BONIVA [Concomitant]
  9. REBIF [Suspect]
     Route: 058
  10. MULTI-VITAMIN [Concomitant]
  11. MECLIZINE [Concomitant]
     Route: 048
  12. UROGESIC BLUE [Concomitant]
     Route: 048
  13. CORDRAN [Concomitant]
  14. TRIAZOLAM [Concomitant]
     Indication: PRODUCT USED FOR UNKNOWN INDICATION
  15. NITROFURANTOIN MACROCRYSTAL [Concomitant]
     Route: 048
  16. PRILOSEC OTC [Concomitant]
     Route: 048
  17. CYMBALTA [Concomitant]
     Indication: TRIGEMINAL NEURALGIA

REACTIONS (2)
  - TRIGEMINAL NEURALGIA [None]
  - BENIGN LUNG NEOPLASM [None]
